FAERS Safety Report 20327286 (Version 1)
Quarter: 2022Q1

REPORT INFORMATION
  Report Type: Spontaneous
  Country: US (occurrence: None)
  Receive Date: 20220112
  Receipt Date: 20220112
  Transmission Date: 20220423
  Serious: Yes (Life-Threatening)
  Sender: FDA-Public Use
  Company Number: None

PATIENT
  Age: 74 Year
  Sex: Male
  Weight: 81 kg

DRUGS (1)
  1. IOHEXOL [Suspect]
     Active Substance: IOHEXOL
     Indication: Abdominal pain
     Dosage: FREQUENCY : ONCE;?
     Route: 042
     Dates: start: 20211123, end: 20211123

REACTIONS (3)
  - Angioedema [None]
  - Rash [None]
  - Pharyngeal swelling [None]

NARRATIVE: CASE EVENT DATE: 20211123
